FAERS Safety Report 18726786 (Version 2)
Quarter: 2021Q1

REPORT INFORMATION
  Report Type: Spontaneous
  Country: FR (occurrence: FR)
  Receive Date: 20210112
  Receipt Date: 20210220
  Transmission Date: 20210419
  Serious: Yes (Other)
  Sender: FDA-Public Use
  Company Number: FR-JNJFOC-20201153442

PATIENT
  Age: 60 Year
  Sex: Female
  Weight: 50 kg

DRUGS (1)
  1. ERDAFITINIB. [Suspect]
     Active Substance: ERDAFITINIB
     Indication: METASTATIC CARCINOMA OF THE BLADDER
     Dosage: 7 MG/DAY INITIALLY AND THEN 6 MG/DAY
     Route: 065
     Dates: start: 20200928, end: 20210104

REACTIONS (6)
  - Diarrhoea [Not Recovered/Not Resolved]
  - Xerosis [Unknown]
  - Weight decreased [Unknown]
  - Calciphylaxis [Unknown]
  - Keratitis [Unknown]
  - Mucosal inflammation [Not Recovered/Not Resolved]

NARRATIVE: CASE EVENT DATE: 20201015
